FAERS Safety Report 4557954-2 (Version None)
Quarter: 2005Q1

REPORT INFORMATION
  Report Type: 
  Country: None (occurrence: None)
  Receive Date: 20050121
  Receipt Date: 20040227
  Transmission Date: 20050727
  Serious: No
  Sender: FDA-Public Use
  Company Number: US-BRISTOL-MYERS SQUIBB COMPANY-12518940

PATIENT
  Age: 50 Year
  Sex: Male
  Weight: 101 kg

DRUGS (4)
  1. SERZONE [Suspect]
     Route: 048
     Dates: start: 20000115, end: 20020911
  2. FELODIPINE [Concomitant]
  3. IBUPROFEN [Concomitant]
  4. METHOCARBAMOL [Concomitant]

REACTIONS (2)
  - ALANINE AMINOTRANSFERASE INCREASED [None]
  - DRUG SCREEN POSITIVE [None]
